FAERS Safety Report 7351903-X (Version None)
Quarter: 2011Q1

REPORT INFORMATION
  Report Type: 
  Country: None (occurrence: None)
  Receive Date: 20110315
  Receipt Date: 20110311
  Transmission Date: 20110831
  Serious: Yes (Other)
  Sender: FDA-Public Use
  Company Number: US-BAYER-2011-022530

PATIENT
  Sex: Female

DRUGS (2)
  1. YAZ [Suspect]
     Dosage: UNK
     Dates: start: 20080101, end: 20091201
  2. YASMIN [Suspect]
     Dosage: UNK
     Dates: start: 20080101, end: 20091201

REACTIONS (1)
  - GALLBLADDER DISORDER [None]
